FAERS Safety Report 14658190 (Version 1)
Quarter: 2018Q1

REPORT INFORMATION
  Report Type: Spontaneous
  Country: US (occurrence: US)
  Receive Date: 20180320
  Receipt Date: 20180320
  Transmission Date: 20180509
  Serious: No
  Sender: FDA-Public Use
  Company Number: US-JNJFOC-20180309508

PATIENT
  Age: 31 Year
  Sex: Female
  Weight: 45.36 kg

DRUGS (1)
  1. NIZORAL A-D [Suspect]
     Active Substance: KETOCONAZOLE
     Indication: DRUG THERAPY
     Route: 061
     Dates: start: 20180305, end: 20180305

REACTIONS (4)
  - Skin irritation [Recovering/Resolving]
  - Burning sensation [Recovering/Resolving]
  - Alopecia [Recovering/Resolving]
  - Pruritus [Recovering/Resolving]

NARRATIVE: CASE EVENT DATE: 20180305
